FAERS Safety Report 23640915 (Version 1)
Quarter: 2024Q1

REPORT INFORMATION
  Report Type: Spontaneous
  Country: GB (occurrence: GB)
  Receive Date: 20240318
  Receipt Date: 20240318
  Transmission Date: 20240410
  Serious: Yes (Other)
  Sender: FDA-Public Use
  Company Number: None

PATIENT
  Age: 75 Year
  Sex: Male
  Weight: 98 kg

DRUGS (5)
  1. EZETIMIBE [Suspect]
     Active Substance: EZETIMIBE
     Indication: Product used for unknown indication
     Dosage: 30 MG
     Route: 065
  2. MIRABEGRON [Concomitant]
     Active Substance: MIRABEGRON
     Indication: Micturition urgency
     Dosage: TO REDUCE BLADDER URGE
     Route: 065
     Dates: start: 20210616
  3. SILDENAFIL [Concomitant]
     Active Substance: SILDENAFIL
     Indication: Product used for unknown indication
     Dosage: TO BE TAKEN AS DIRECTED
     Route: 065
     Dates: start: 20200227
  4. METFORMIN HYDROCHLORIDE [Concomitant]
     Active Substance: METFORMIN HYDROCHLORIDE
     Indication: Product used for unknown indication
     Dosage: WITH MEALS (METFORMIN T...
     Route: 065
     Dates: start: 20220407
  5. ZOPICLONE [Concomitant]
     Active Substance: ZOPICLONE
     Indication: Product used for unknown indication
     Dosage: TAKE ONE TABLET AT NIGHT WHEN REQUIRED. DO NOT ...
     Route: 065
     Dates: start: 20231213, end: 20240110

REACTIONS (2)
  - Muscular weakness [Recovered/Resolved]
  - Asthenia [Unknown]
